FAERS Safety Report 9849847 (Version 1)
Quarter: 2014Q1

REPORT INFORMATION
  Report Type: Spontaneous
  Country: BR (occurrence: BR)
  Receive Date: 20140128
  Receipt Date: 20140128
  Transmission Date: 20141002
  Serious: Yes (Hospitalization)
  Sender: FDA-Public Use
  Company Number: BR-ASTRAZENECA-2014SE04471

PATIENT
  Age: 776 Month
  Sex: Female
  Weight: 68 kg

DRUGS (4)
  1. BRILINTA [Suspect]
     Indication: ISCHAEMIC HEART DISEASE PROPHYLAXIS
     Dosage: TWO TIMES A DAY
     Route: 048
     Dates: start: 201212
  2. ASPIRINA PREVENT [Concomitant]
     Indication: ISCHAEMIC HEART DISEASE PROPHYLAXIS
     Dosage: DAILY
     Route: 048
     Dates: start: 201212
  3. SIMVASTATIN [Concomitant]
     Indication: ISCHAEMIC HEART DISEASE PROPHYLAXIS
     Dosage: DAILY
     Route: 048
     Dates: start: 201212
  4. LOSARTAN POTASSIUM [Concomitant]
     Indication: ISCHAEMIC HEART DISEASE PROPHYLAXIS
     Dosage: DAILY
     Route: 048
     Dates: start: 201212

REACTIONS (3)
  - Myocardial infarction [Recovered/Resolved]
  - Angina pectoris [Recovered/Resolved]
  - Skin discolouration [Not Recovered/Not Resolved]
